FAERS Safety Report 16836399 (Version 2)
Quarter: 2021Q2

REPORT INFORMATION
  Report Type: Spontaneous
  Country: CA (occurrence: CA)
  Receive Date: 20190921
  Receipt Date: 20210605
  Transmission Date: 20210716
  Serious: Yes (Life-Threatening, Hospitalization, Other)
  Sender: FDA-Public Use
  Company Number: CA-AUROBINDO-AUR-APL-2019-059957

PATIENT
  Age: 82 Year
  Sex: Female

DRUGS (21)
  1. OLANZAPINE. [Suspect]
     Active Substance: OLANZAPINE
     Indication: CHOKING SENSATION
  2. RISPERIDONE. [Suspect]
     Active Substance: RISPERIDONE
     Indication: DYSPHAGIA
  3. MIRTAZAPINE TABLET [Suspect]
     Active Substance: MIRTAZAPINE
     Indication: PHAGOPHOBIA
     Dosage: UNK
     Route: 065
  4. VENLAFAXINE XR EXTENDED RELEASE CAPSULE [Suspect]
     Active Substance: VENLAFAXINE HYDROCHLORIDE
     Indication: PHAGOPHOBIA
     Dosage: UNK
     Route: 065
  5. VENLAFAXINE XR EXTENDED RELEASE CAPSULE [Suspect]
     Active Substance: VENLAFAXINE HYDROCHLORIDE
     Indication: CHOKING SENSATION
  6. LORAZEPAM. [Suspect]
     Active Substance: LORAZEPAM
     Indication: PHAGOPHOBIA
     Dosage: UNK
     Route: 065
  7. RISPERIDONE. [Suspect]
     Active Substance: RISPERIDONE
     Indication: PHAGOPHOBIA
     Dosage: UNK
     Route: 065
  8. DULOXETINE. [Suspect]
     Active Substance: DULOXETINE
     Indication: DYSPHAGIA
     Dosage: 60 MILLIGRAM
     Route: 065
  9. MIRTAZAPINE TABLET [Suspect]
     Active Substance: MIRTAZAPINE
     Indication: DYSPHAGIA
     Dosage: 45 MILLIGRAM
     Route: 065
  10. VENLAFAXINE [Suspect]
     Active Substance: VENLAFAXINE HYDROCHLORIDE
     Indication: CHOKING SENSATION
  11. LORAZEPAM. [Suspect]
     Active Substance: LORAZEPAM
     Indication: DYSPHAGIA
     Dosage: 10 MILLIGRAM
     Route: 065
  12. LORAZEPAM. [Suspect]
     Active Substance: LORAZEPAM
     Indication: CHOKING SENSATION
  13. DULOXETINE. [Suspect]
     Active Substance: DULOXETINE
     Indication: PHAGOPHOBIA
     Dosage: UNK
     Route: 065
  14. DULOXETINE. [Suspect]
     Active Substance: DULOXETINE
     Indication: CHOKING SENSATION
  15. OLANZAPINE. [Suspect]
     Active Substance: OLANZAPINE
     Indication: PHAGOPHOBIA
     Dosage: UNK
     Route: 065
  16. VENLAFAXINE [Suspect]
     Active Substance: VENLAFAXINE HYDROCHLORIDE
     Indication: PHAGOPHOBIA
     Dosage: UNK
     Route: 065
  17. DULOXETINE SANDOZ [Suspect]
     Active Substance: DULOXETINE
     Indication: CHOKING SENSATION
  18. MIRTAZAPINE TABLET [Suspect]
     Active Substance: MIRTAZAPINE
     Indication: CHOKING SENSATION
  19. DULOXETINE SANDOZ [Suspect]
     Active Substance: DULOXETINE
     Indication: PHAGOPHOBIA
     Dosage: 60 MILLIGRAM
     Route: 065
  20. RISPERIDONE. [Suspect]
     Active Substance: RISPERIDONE
     Indication: CHOKING SENSATION
  21. OLANZAPINE. [Suspect]
     Active Substance: OLANZAPINE
     Indication: DYSPHAGIA
     Dosage: 10 MILLIGRAM
     Route: 065

REACTIONS (5)
  - Tardive dyskinesia [Unknown]
  - Phagophobia [Unknown]
  - Therapeutic product effect incomplete [Unknown]
  - Drug ineffective [Unknown]
  - Drug resistance [Unknown]
